FAERS Safety Report 10619466 (Version 1)
Quarter: 2014Q4

REPORT INFORMATION
  Report Type: Spontaneous
  Country: US (occurrence: None)
  Receive Date: 20141201
  Receipt Date: 20141201
  Transmission Date: 20150529
  Serious: Yes (Other)
  Sender: FDA-Public Use
  Company Number: None

PATIENT
  Age: 51 Year
  Sex: Male
  Weight: 70.31 kg

DRUGS (1)
  1. ADVATE [Suspect]
     Active Substance: ANTIHEMOPHILIC FACTOR, HUMAN RECOMBINANT
     Indication: FACTOR VIII DEFICIENCY
     Dosage: 3063?3 TIME WEEKLY?INTO A VEIN?FOR MANY YEARS

REACTIONS (5)
  - Hypersensitivity [None]
  - Dizziness [None]
  - Hallucination, olfactory [None]
  - Product quality issue [None]
  - Dysgeusia [None]

NARRATIVE: CASE EVENT DATE: 20141121
